FAERS Safety Report 16916809 (Version 1)
Quarter: 2019Q4

REPORT INFORMATION
  Report Type: Spontaneous
  Country: FR (occurrence: FR)
  Receive Date: 20191015
  Receipt Date: 20191015
  Transmission Date: 20200122
  Serious: Yes (Other)
  Sender: FDA-Public Use
  Company Number: FR-US-PROVELL PHARMACEUTICALS LLC-E2B_90071267

PATIENT
  Sex: Female
  Weight: 157 kg

DRUGS (1)
  1. LEVOTHYROX 75 [Suspect]
     Active Substance: LEVOTHYROXINE
     Indication: HYPOTHYROIDISM
     Route: 048
     Dates: start: 20170502, end: 20171019

REACTIONS (4)
  - Depression [Unknown]
  - Alopecia [Unknown]
  - Weight increased [Unknown]
  - Arrested labour [Unknown]

NARRATIVE: CASE EVENT DATE: 20170812
